FAERS Safety Report 16914607 (Version 1)
Quarter: 2019Q4

REPORT INFORMATION
  Report Type: Other
  Country: GB (occurrence: GB)
  Receive Date: 20191014
  Receipt Date: 20191014
  Transmission Date: 20200122
  Serious: Yes (Life-Threatening, Hospitalization, Other)
  Sender: FDA-Public Use
  Company Number: GB-GRANULES INDIA LIMITED-2075619

PATIENT
  Age: 75 Year
  Sex: Female

DRUGS (7)
  1. DIHYDROCODEINE [Concomitant]
     Active Substance: DIHYDROCODEINE
     Route: 065
  2. AMLODIPINE [Concomitant]
     Active Substance: AMLODIPINE BESYLATE
     Route: 065
  3. GABAPENTIN CAPSULES USP, 100MG, 300 MG AND 400 MG [Suspect]
     Active Substance: GABAPENTIN
     Indication: ANALGESIC THERAPY
     Route: 065
  4. DICLOFENAC SODIUM. [Concomitant]
     Active Substance: DICLOFENAC SODIUM
     Route: 065
  5. TRAMADOL. [Concomitant]
     Active Substance: TRAMADOL
     Route: 065
  6. FUROSEMIDE. [Concomitant]
     Active Substance: FUROSEMIDE
     Route: 065
  7. IRBESARTAN. [Concomitant]
     Active Substance: IRBESARTAN
     Route: 065

REACTIONS (11)
  - Myoclonus [Unknown]
  - Fall [Unknown]
  - Somnolence [Recovering/Resolving]
  - Loss of consciousness [Recovered/Resolved]
  - Hypotension [Unknown]
  - Condition aggravated [Recovering/Resolving]
  - Disturbance in attention [Recovering/Resolving]
  - Off label use [Unknown]
  - Toxicity to various agents [Unknown]
  - Loss of personal independence in daily activities [Unknown]
  - Overdose [Unknown]
